FAERS Safety Report 8792225 (Version 1)
Quarter: 2012Q4

REPORT INFORMATION
  Report Type: 
  Country: US (occurrence: US)
  Receive Date: 20120918
  Receipt Date: 20120918
  Transmission Date: 20130627
  Serious: Yes (Other)
  Sender: FDA-Public Use
  Company Number: US-COVIDIEN/TYCO HEALTHCARE/MALLINCKRODT-T201203430

PATIENT
  Age: 49 Year
  Sex: Male
  Weight: 100 kg

DRUGS (9)
  1. MORPHINE [Suspect]
     Indication: BACK PAIN
     Dosage: 0.4 mg/mL (Basal rate 0.5 mL/hr)
     Route: 008
  2. MORPHINE [Suspect]
     Dosage: UNK
  3. BUPIVACAINE [Suspect]
     Indication: BACK PAIN
     Dosage: 0.016%
  4. MORPHINE [Concomitant]
     Dosage: 60 mg, bid
  5. MELOXICAM [Concomitant]
     Dosage: 7.5 mg, qd
  6. LIDOCAINE                          /00033402/ [Concomitant]
     Dosage: 1-2 patches,  every other 12 hours
  7. HYDROCODONE W/ACETAMINOPHEN [Concomitant]
     Dosage: 10/500, tid, prn
  8. SCOPOLAMINE /00008701/ [Concomitant]
     Indication: NAUSEA
  9. PHENERGAN                          /00033001/ [Concomitant]
     Indication: NAUSEA

REACTIONS (1)
  - Priapism [Recovered/Resolved]
